FAERS Safety Report 22252500 (Version 1)
Quarter: 2023Q2

REPORT INFORMATION
  Report Type: Spontaneous
  Country: US (occurrence: US)
  Receive Date: 20230426
  Receipt Date: 20230426
  Transmission Date: 20230722
  Serious: Yes (Other)
  Sender: FDA-Public Use
  Company Number: US-STRIDES ARCOLAB LIMITED-2022SP017727

PATIENT
  Age: 66 Year
  Sex: Female

DRUGS (5)
  1. LIDOCAINE [Suspect]
     Active Substance: LIDOCAINE
     Indication: Necrobiosis lipoidica diabeticorum
     Dosage: UNK
     Route: 061
  2. LIDOCAINE [Suspect]
     Active Substance: LIDOCAINE
     Indication: Pain
  3. DOXYCYCLINE [Suspect]
     Active Substance: DOXYCYCLINE
     Indication: Necrobiosis lipoidica diabeticorum
     Dosage: 100 MILLIGRAM, BID
     Route: 065
  4. CLINDAMYCIN [Suspect]
     Active Substance: CLINDAMYCIN
     Indication: Necrobiosis lipoidica diabeticorum
     Dosage: UNK
     Route: 065
  5. CLOBETASOL [Suspect]
     Active Substance: CLOBETASOL
     Indication: Necrobiosis lipoidica diabeticorum
     Dosage: UNK, BID
     Route: 065

REACTIONS (1)
  - Drug ineffective for unapproved indication [Unknown]
